FAERS Safety Report 23920706 (Version 1)
Quarter: 2024Q2

REPORT INFORMATION
  Report Type: Spontaneous
  Country: US (occurrence: None)
  Receive Date: 20240529
  Receipt Date: 20240529
  Transmission Date: 20240716
  Serious: Yes (Hospitalization, Disabling, Other)
  Sender: FDA-Public Use
  Company Number: None

PATIENT
  Sex: Male

DRUGS (1)
  1. CIPROFLOXACIN [Suspect]
     Active Substance: CIPROFLOXACIN
     Indication: Sinusitis
     Dates: start: 20070405, end: 20070410

REACTIONS (4)
  - Inflammation [None]
  - Connective tissue disorder [None]
  - Headache [None]
  - Disturbance in attention [None]

NARRATIVE: CASE EVENT DATE: 20070410
